FAERS Safety Report 16005659 (Version 2)
Quarter: 2019Q1

REPORT INFORMATION
  Report Type: Spontaneous
  Country: GB (occurrence: GB)
  Receive Date: 20190226
  Receipt Date: 20190315
  Transmission Date: 20190418
  Serious: Yes (Other)
  Sender: FDA-Public Use
  Company Number: GB-ROCHE-2269417

PATIENT
  Age: 67 Year
  Sex: Male

DRUGS (7)
  1. HYDROCORTISONE. [Concomitant]
     Active Substance: HYDROCORTISONE
  2. THYROXINE [Concomitant]
     Active Substance: LEVOTHYROXINE
  3. PREGABALIN. [Concomitant]
     Active Substance: PREGABALIN
  4. ATORVASTATIN [Concomitant]
     Active Substance: ATORVASTATIN
     Route: 065
  5. OMEPRAZOLE. [Concomitant]
     Active Substance: OMEPRAZOLE
  6. DOXAZOSIN [Concomitant]
     Active Substance: DOXAZOSIN\DOXAZOSIN MESYLATE
     Route: 065
  7. NUTROPIN [Suspect]
     Active Substance: SOMATROPIN
     Indication: PRODUCT USED FOR UNKNOWN INDICATION
     Route: 065
     Dates: start: 2000

REACTIONS (5)
  - Myocardial infarction [Unknown]
  - Cystitis [Unknown]
  - Meningitis pneumococcal [Unknown]
  - Product dose omission [Unknown]
  - Sarcoma [Unknown]

NARRATIVE: CASE EVENT DATE: 200603
